FAERS Safety Report 10197557 (Version 1)
Quarter: 2014Q2

REPORT INFORMATION
  Report Type: Spontaneous
  Country: US (occurrence: US)
  Receive Date: 20140527
  Receipt Date: 20140527
  Transmission Date: 20141212
  Serious: No
  Sender: FDA-Public Use
  Company Number: US-BAYER-2014-071511

PATIENT
  Age: 60 Year
  Sex: Female

DRUGS (19)
  1. ALEVE CAPLET [Suspect]
  2. ALBUTEROL SULFATE [Concomitant]
     Indication: WHEEZING
     Dosage: INHALE 2 PUFFS EVERY 4 HOURS AS NEEDED.
  3. AMITRIPTYLINE [Concomitant]
     Dosage: 1 AT BEDTIME FOR ONE WEEK, THEN INCREASES TO 2 AT BEDTIME.
  4. AZELASTINE HYDROCHLORIDE [Concomitant]
     Dosage: 2 SPRAYS BY NASAL ROUTE 2 TIMES DAILY. USE IN EACH NOSTRILES AS DIRECTED.
  5. BENZONATATE [Concomitant]
     Indication: COUGH
     Dosage: BY MOUTH THREE TIMES DAILY, PRN
  6. BUTALBITAL, ACETAMINOPHEN + CAFFEINE [Concomitant]
     Indication: HEADACHE
     Dosage: 1 DF,BY MOUTH EVERY 4 HOURS,  PRN
  7. BUTALBITAL, ACETAMINOPHEN + CAFFEINE [Concomitant]
     Indication: HEADACHE
     Dosage: 1 DF,BY MOUTH EVERY 4 HOURS,  PRN
  8. CYANOCOBALAMIN [Concomitant]
     Dosage: 1 ML INJECT EVERY 30 DAYS.
     Route: 030
  9. DEXLANSOPRAZOLE [Concomitant]
     Dosage: UNK
     Route: 048
  10. FLAXSEED OIL [Concomitant]
     Dosage: UNK
     Route: 048
  11. FLUTICASONE PROPIONATE [Concomitant]
     Dosage: 2 SPRAYS DAILY
     Route: 045
  12. LIDOCAINE [Concomitant]
     Dosage: TWO TIMES
  13. OXYCODONE HYDROCHLORIDE W/PARACETAMOL [Concomitant]
     Indication: PAIN
     Dosage: 1 DF, EVERY 6 HOURS,PRN
  14. PREGABALIN [Concomitant]
     Dosage: 1 DF, BID
     Route: 048
  15. PREGABALIN [Concomitant]
     Dosage: 1 UNK, BID
     Route: 048
  16. SUMATRIPTAN SUCCINATE [Concomitant]
     Indication: MIGRAINE
     Dosage: 1 DF,ONCE, PRN
     Route: 048
  17. TOPIRAMATE [Concomitant]
     Dosage: 1 DF, BID
     Route: 048
  18. TOPIRAMATE [Concomitant]
     Dosage: 1 DF, BID
     Route: 048
  19. TRAZODONE HCL [Concomitant]
     Dosage: 1 DF, QD
     Route: 048

REACTIONS (2)
  - Drug hypersensitivity [None]
  - Swelling [None]
